FAERS Safety Report 8947407 (Version 1)
Quarter: 2012Q4

REPORT INFORMATION
  Report Type: 
  Country: PL (occurrence: PL)
  Receive Date: 20121205
  Receipt Date: 20121205
  Transmission Date: 20130627
  Serious: Yes (Hospitalization)
  Sender: FDA-Public Use
  Company Number: PL-PFIZER INC-2012251227

PATIENT
  Age: 3 Year
  Sex: Female
  Weight: 16.1 kg

DRUGS (8)
  1. VFEND [Suspect]
     Indication: FUNGAL INFECTION NOS
     Dosage: 100 mg, 2x/day
     Route: 042
     Dates: start: 20120516, end: 20120516
  2. VFEND [Suspect]
     Dosage: 130 mg, 2x/day
     Route: 042
     Dates: start: 20120517, end: 20120521
  3. MERONEM [Concomitant]
     Dosage: 350 mg, 3x/day
     Route: 042
     Dates: start: 20120519, end: 20120523
  4. ACYCLOVIR [Concomitant]
     Dosage: 150 mg, 3x/day
     Route: 042
     Dates: start: 20120515, end: 20120521
  5. CYCLOSPORIN A [Concomitant]
     Dosage: 5.5 mg, 2x/day
     Route: 042
     Dates: start: 20120201, end: 20121026
  6. METHYPRED [Concomitant]
     Dosage: 12 mg, 2x/day
     Route: 048
     Dates: start: 20120229, end: 20120521
  7. METHYPRED [Concomitant]
     Dosage: 10 mg/48h
     Dates: start: 20120521, end: 20121103
  8. BISEPTOL [Concomitant]
     Dosage: 6 ml, 2x/day
     Route: 048
     Dates: start: 20120223, end: 20121120

REACTIONS (4)
  - Convulsion [Recovered/Resolved]
  - Hypertension [Recovered/Resolved]
  - Visual impairment [Recovered/Resolved]
  - Epilepsy [Recovered/Resolved]
